FAERS Safety Report 9156499 (Version 1)
Quarter: 2013Q1

REPORT INFORMATION
  Report Type: Spontaneous
  Country: US (occurrence: None)
  Receive Date: 20130308
  Receipt Date: 20130308
  Transmission Date: 20140127
  Serious: Yes (Life-Threatening)
  Sender: FDA-Public Use
  Company Number: None

PATIENT
  Age: 79 Year
  Sex: Female
  Weight: 82.1 kg

DRUGS (2)
  1. CUBICIN [Suspect]
     Indication: POST PROCEDURAL INFECTION
     Route: 042
     Dates: start: 20130214, end: 20130227
  2. CUBICIN [Suspect]
     Indication: STAPHYLOCOCCAL INFECTION
     Route: 042
     Dates: start: 20130214, end: 20130227

REACTIONS (3)
  - Dyspnoea [None]
  - Pneumonia [None]
  - Eosinophilic pneumonia [None]
